FAERS Safety Report 17355078 (Version 3)
Quarter: 2021Q4

REPORT INFORMATION
  Report Type: Spontaneous
  Country: JP (occurrence: JP)
  Receive Date: 20200131
  Receipt Date: 20211222
  Transmission Date: 20220303
  Serious: Yes (Hospitalization)
  Sender: FDA-Public Use
  Company Number: JP-ELI_LILLY_AND_COMPANY-JP202001011406

PATIENT
  Sex: Male
  Weight: 89 kg

DRUGS (1)
  1. TALTZ [Suspect]
     Active Substance: IXEKIZUMAB
     Indication: Psoriasis
     Dosage: 80 MG
     Route: 058
     Dates: start: 20170815, end: 20191007

REACTIONS (3)
  - Gastric cancer stage III [Unknown]
  - Colon cancer [Unknown]
  - Anaemia [Unknown]

NARRATIVE: CASE EVENT DATE: 20190101
